FAERS Safety Report 15892081 (Version 1)
Quarter: 2019Q1

REPORT INFORMATION
  Report Type: Spontaneous
  Country: BE (occurrence: BE)
  Receive Date: 20190130
  Receipt Date: 20190130
  Transmission Date: 20190417
  Serious: No
  Sender: FDA-Public Use
  Company Number: BE-IPSEN-CABO-18013088

PATIENT
  Age: 69 Year
  Sex: Male

DRUGS (1)
  1. CABOMETYX [Suspect]
     Active Substance: CABOZANTINIB S-MALATE
     Indication: METASTATIC RENAL CELL CARCINOMA
     Dosage: 60 MG, UNK
     Dates: start: 20180224

REACTIONS (12)
  - Plicated tongue [Unknown]
  - Hypothyroidism [Unknown]
  - Rash [Recovering/Resolving]
  - Ageusia [Unknown]
  - Cough [Unknown]
  - Creatinine renal clearance decreased [Unknown]
  - Weight decreased [Recovering/Resolving]
  - Dysphonia [Unknown]
  - Proteinuria [Unknown]
  - Anaemia [Unknown]
  - Abnormal faeces [Unknown]
  - Dysgeusia [Unknown]

NARRATIVE: CASE EVENT DATE: 20180306
